FAERS Safety Report 11266971 (Version 1)
Quarter: 2015Q3

REPORT INFORMATION
  Report Type: Spontaneous
  Country: US (occurrence: US)
  Receive Date: 20150713
  Receipt Date: 20150713
  Transmission Date: 20151125
  Serious: Yes (Other)
  Sender: FDA-Public Use
  Company Number: US-ENDO PHARMACEUTICALS INC.-2015-001721

PATIENT
  Sex: Male
  Weight: 76.27 kg

DRUGS (2)
  1. VALIUM [Concomitant]
     Active Substance: DIAZEPAM
     Indication: SPONTANEOUS PENILE ERECTION
     Route: 065
     Dates: start: 2015
  2. XIAFLEX [Suspect]
     Active Substance: COLLAGENASE CLOSTRIDIUM HISTOLYTICUM
     Indication: PEYRONIE^S DISEASE
     Dosage: SIX INJECTIONS
     Route: 026
     Dates: start: 2015

REACTIONS (6)
  - Penile haematoma [Recovered/Resolved]
  - Erectile dysfunction [Recovered/Resolved]
  - Penile burning sensation [Recovered/Resolved]
  - Penis disorder [Recovered/Resolved]
  - Penile pain [Recovered/Resolved]
  - Penile swelling [Recovered/Resolved]

NARRATIVE: CASE EVENT DATE: 2015
